FAERS Safety Report 4916107-6 (Version None)
Quarter: 2006Q1

REPORT INFORMATION
  Report Type: 
  Country: None (occurrence: None)
  Receive Date: 20060113
  Receipt Date: 20051005
  Transmission Date: 20060701
  Serious: No
  Sender: FDA-Public Use
  Company Number: 2005SP003363

PATIENT
  Age: 51 Year
  Sex: Male
  Weight: 62.5964 kg

DRUGS (4)
  1. LUNESTA [Suspect]
     Indication: INSOMNIA
     Dosage: SEE IMAGE
     Route: 048
     Dates: start: 20050701, end: 20050901
  2. LUNESTA [Suspect]
     Indication: INSOMNIA
     Dosage: SEE IMAGE
     Route: 048
     Dates: start: 20050901
  3. ASPIRIN [Concomitant]
  4. AMBIEN [Concomitant]

REACTIONS (5)
  - DRUG INEFFECTIVE [None]
  - DYSGEUSIA [None]
  - INCREASED APPETITE [None]
  - MIDDLE INSOMNIA [None]
  - WEIGHT INCREASED [None]
